FAERS Safety Report 20250526 (Version 1)
Quarter: 2021Q4

REPORT INFORMATION
  Report Type: Spontaneous
  Country: US (occurrence: US)
  Receive Date: 20211229
  Receipt Date: 20211229
  Transmission Date: 20220304
  Serious: Yes (Other)
  Sender: FDA-Public Use
  Company Number: US-PURDUE-USA-2020-0218912

PATIENT
  Age: 73 Year
  Sex: Male

DRUGS (14)
  1. OXYCONTIN [Suspect]
     Active Substance: OXYCODONE HYDROCHLORIDE
     Indication: Spinal operation
     Dosage: UNKNOWN
     Route: 048
  2. DILAUDID [Suspect]
     Active Substance: HYDROMORPHONE HYDROCHLORIDE
     Indication: Spinal operation
     Dosage: UNKNOWN
     Route: 048
  3. BUTRANS [Suspect]
     Active Substance: BUPRENORPHINE
     Indication: Spinal operation
     Dosage: UNKNOWN
     Route: 062
  4. BUPRENORPHINE [Suspect]
     Active Substance: BUPRENORPHINE
     Indication: Spinal operation
     Dosage: UNKNOWN
     Route: 062
  5. OXYCODONE HYDROCHLORIDE [Suspect]
     Active Substance: OXYCODONE HYDROCHLORIDE
     Indication: Spinal operation
     Dosage: UNKNOWN
     Route: 048
  6. OXYCODONE HYDROCHLORIDE [Suspect]
     Active Substance: OXYCODONE HYDROCHLORIDE
     Indication: Spinal operation
     Dosage: UNKNOWN
     Route: 048
  7. ACETAMINOPHEN\OXYCODONE HYDROCHLORIDE [Suspect]
     Active Substance: ACETAMINOPHEN\OXYCODONE HYDROCHLORIDE
     Indication: Spinal operation
     Dosage: UNKNOWN
     Route: 048
  8. HYDROCODONE BITARTRATE AND ACETAMINOPHEN [Suspect]
     Active Substance: ACETAMINOPHEN\HYDROCODONE BITARTRATE
     Indication: Spinal operation
     Dosage: UNKNOWN
     Route: 048
  9. HYDROMORPHONE [Suspect]
     Active Substance: HYDROMORPHONE
     Indication: Spinal operation
     Dosage: UNKNOWN
     Route: 048
  10. MORPHINE SULFATE [Suspect]
     Active Substance: MORPHINE SULFATE
     Indication: Spinal operation
     Dosage: UNKNOWN
     Route: 048
  11. TRAMADOL [Suspect]
     Active Substance: TRAMADOL
     Indication: Spinal operation
     Dosage: UNKNOWN
     Route: 048
  12. DULOXETINE HYDROCHLORIDE [Suspect]
     Active Substance: DULOXETINE HYDROCHLORIDE
     Indication: Spinal operation
     Dosage: UNKNOWN
     Route: 065
  13. OPANA [Suspect]
     Active Substance: OXYMORPHONE HYDROCHLORIDE
     Indication: Spinal operation
     Dosage: UNKNOWN
     Route: 065
  14. FENTANYL [Suspect]
     Active Substance: FENTANYL
     Indication: Spinal operation
     Dosage: UNKNOWN
     Route: 062

REACTIONS (3)
  - Drug dependence [Unknown]
  - Depression [Unknown]
  - Pain [Unknown]
